FAERS Safety Report 4297557-0 (Version None)
Quarter: 2004Q1

REPORT INFORMATION
  Report Type: 
  Country: None (occurrence: None)
  Receive Date: 20040126
  Receipt Date: 20030829
  Transmission Date: 20041129
  Serious: No
  Sender: FDA-Public Use
  Company Number: USA030945903

PATIENT
  Age: 13 Year
  Sex: Male

DRUGS (2)
  1. STRATTERA [Suspect]
     Indication: BIPOLAR DISORDER
     Dates: end: 20030828
  2. TENEX (GUAFACINE HYDROCHLORIDE) [Concomitant]

REACTIONS (1)
  - EPISTAXIS [None]
